FAERS Safety Report 17215274 (Version 1)
Quarter: 2019Q4

REPORT INFORMATION
  Report Type: Report from Study
  Country: US (occurrence: US)
  Receive Date: 20191230
  Receipt Date: 20191230
  Transmission Date: 20200122
  Serious: Yes (Hospitalization)
  Sender: FDA-Public Use
  Company Number: US-PFIZER INC-2019514600

PATIENT
  Age: 61 Year
  Sex: Female

DRUGS (2)
  1. IBRANCE [Suspect]
     Active Substance: PALBOCICLIB
     Dosage: 125 MG, CYCLIC (ONCE DAILY 21 DAYS ON, 7 DAYS OFF/ 21 OUT OF 28 DAYS)
     Route: 048
     Dates: start: 2019
  2. IBRANCE [Suspect]
     Active Substance: PALBOCICLIB
     Indication: BREAST CANCER METASTATIC
     Dosage: 125 MG, CYCLIC (ONCE DAILY 21 DAYS ON, 7 DAYS OFF/ 21 OUT OF 28 DAYS)
     Route: 048
     Dates: start: 20191011, end: 20191114

REACTIONS (3)
  - Dehydration [Unknown]
  - Haemoglobin decreased [Unknown]
  - Bone pain [Unknown]

NARRATIVE: CASE EVENT DATE: 2019
